APPROVED DRUG PRODUCT: SULFAMETHOXAZOLE AND TRIMETHOPRIM
Active Ingredient: SULFAMETHOXAZOLE; TRIMETHOPRIM
Strength: 200MG/5ML;40MG/5ML
Dosage Form/Route: SUSPENSION;ORAL
Application: N018812 | Product #002
Applicant: TEVA PHARMACEUTICALS USA INC
Approved: Jun 10, 1983 | RLD: No | RS: No | Type: DISCN